FAERS Safety Report 7997860-4 (Version None)
Quarter: 2011Q4

REPORT INFORMATION
  Report Type: 
  Country: None (occurrence: None)
  Receive Date: 20111221
  Receipt Date: 20111209
  Transmission Date: 20120403
  Serious: Yes (Other)
  Sender: FDA-Public Use
  Company Number: PHHY2010CA76364

PATIENT
  Sex: Female

DRUGS (2)
  1. SANDOSTATIN LAR [Suspect]
     Indication: CARCINOID TUMOUR
     Dosage: 80 MG, QMO
     Route: 030
     Dates: start: 20080428
  2. AFINITOR [Suspect]
     Indication: CARCINOID TUMOUR

REACTIONS (10)
  - FALL [None]
  - PAIN [None]
  - INJECTION SITE MASS [None]
  - MYALGIA [None]
  - NAUSEA [None]
  - MALAISE [None]
  - PALLOR [None]
  - PNEUMONIA [None]
  - BLOOD POTASSIUM DECREASED [None]
  - CONTUSION [None]
